FAERS Safety Report 4551712-0 (Version None)
Quarter: 2005Q1

REPORT INFORMATION
  Report Type: 
  Country: None (occurrence: None)
  Receive Date: 20050113
  Receipt Date: 20041229
  Transmission Date: 20050727
  Serious: Yes (Hospitalization)
  Sender: FDA-Public Use
  Company Number: FR-JNJFOC-20050101306

PATIENT
  Age: 46 Year
  Sex: Male

DRUGS (6)
  1. TOPALGIC [Suspect]
     Indication: DRUG USE FOR UNKNOWN INDICATION
     Route: 049
  2. EFFERALGAN [Suspect]
     Indication: DRUG USE FOR UNKNOWN INDICATION
     Route: 049
  3. DEROXAT [Suspect]
     Indication: DRUG USE FOR UNKNOWN INDICATION
     Route: 049
  4. NEXEN [Suspect]
     Indication: DRUG USE FOR UNKNOWN INDICATION
     Route: 065
  5. VIOXX [Suspect]
     Indication: DRUG USE FOR UNKNOWN INDICATION
     Route: 049
  6. ART 50 [Suspect]
     Indication: DRUG USE FOR UNKNOWN INDICATION
     Route: 049

REACTIONS (2)
  - PANCREATITIS ACUTE [None]
  - PANCREATITIS NECROTISING [None]
